FAERS Safety Report 11011024 (Version 1)
Quarter: 2015Q2

REPORT INFORMATION
  Report Type: Spontaneous
  Country: US (occurrence: US)
  Receive Date: 20150410
  Receipt Date: 20150410
  Transmission Date: 20150821
  Serious: Yes (Death, Other)
  Sender: FDA-Public Use
  Company Number: US-ABBVIE-15P-163-1373776-00

PATIENT
  Sex: Male

DRUGS (2)
  1. ANDRODERM [Suspect]
     Active Substance: TESTOSTERONE
     Indication: ANDROGEN REPLACEMENT THERAPY
     Route: 065
     Dates: start: 201007, end: 20130411
  2. ANDROGEL [Suspect]
     Active Substance: TESTOSTERONE
     Indication: ANDROGEN REPLACEMENT THERAPY
     Route: 062
     Dates: start: 201007, end: 20130411

REACTIONS (4)
  - Arteriosclerosis [Fatal]
  - Coronary artery disease [Unknown]
  - Coronary artery bypass [Unknown]
  - Hypertensive heart disease [Fatal]

NARRATIVE: CASE EVENT DATE: 20110329
